FAERS Safety Report 7367249-X (Version None)
Quarter: 2011Q1

REPORT INFORMATION
  Report Type: 
  Country: None (occurrence: None)
  Receive Date: 20110311
  Receipt Date: 20110302
  Transmission Date: 20110831
  Serious: Yes (Other)
  Sender: FDA-Public Use
  Company Number: TPA2011A00876

PATIENT
  Sex: Male

DRUGS (2)
  1. ACTOS [Suspect]
  2. METFORMIN HCL [Suspect]

REACTIONS (1)
  - HAEMATOTOXICITY [None]
